FAERS Safety Report 18462215 (Version 1)
Quarter: 2020Q4

REPORT INFORMATION
  Report Type: Spontaneous
  Country: US (occurrence: US)
  Receive Date: 20201103
  Receipt Date: 20201103
  Transmission Date: 20210114
  Serious: Yes (Death)
  Sender: FDA-Public Use
  Company Number: None

PATIENT
  Age: 75 Year
  Sex: Female

DRUGS (1)
  1. ALTEPLASE. [Suspect]
     Active Substance: ALTEPLASE

REACTIONS (6)
  - Chest pain [None]
  - Pulmonary embolism [None]
  - Mental status changes [None]
  - Cardiovascular disorder [None]
  - Cerebral haemorrhage [None]
  - Hypoxia [None]

NARRATIVE: CASE EVENT DATE: 20200219
